FAERS Safety Report 4984756-5 (Version None)
Quarter: 2006Q2

REPORT INFORMATION
  Report Type: 
  Country: None (occurrence: None)
  Receive Date: 20060427
  Receipt Date: 20060414
  Transmission Date: 20061013
  Serious: Yes (Hospitalization)
  Sender: FDA-Public Use
  Company Number: US-MERCK-0604USA03193

PATIENT
  Age: 66 Year
  Sex: Female
  Weight: 62 kg

DRUGS (7)
  1. VIOXX [Suspect]
     Indication: ARTHRITIS
     Route: 048
     Dates: start: 20020603, end: 20040513
  2. VIOXX [Suspect]
     Route: 048
     Dates: start: 20020603, end: 20040513
  3. TENORMIN [Concomitant]
     Route: 065
  4. LORAZEPAM [Concomitant]
     Route: 065
  5. ATENOLOL [Concomitant]
     Route: 065
  6. PREMPRO [Concomitant]
     Route: 065
  7. ALBUTEROL [Concomitant]
     Route: 065

REACTIONS (10)
  - ANEURYSM [None]
  - ATRIAL FIBRILLATION [None]
  - CEREBROVASCULAR ACCIDENT [None]
  - COLITIS [None]
  - COUGH [None]
  - DEPRESSION [None]
  - INTRACRANIAL ANEURYSM [None]
  - METABOLIC ALKALOSIS [None]
  - NERVOUSNESS [None]
  - URINARY TRACT INFECTION [None]
